FAERS Safety Report 6089033-X (Version None)
Quarter: 2009Q1

REPORT INFORMATION
  Report Type: 
  Country: None (occurrence: None)
  Receive Date: 20090224
  Receipt Date: 20090218
  Transmission Date: 20090719
  Serious: Yes (Other)
  Sender: FDA-Public Use
  Company Number: A0769561A

PATIENT
  Age: 44 Year
  Sex: Female

DRUGS (2)
  1. AROPAX [Suspect]
     Indication: ANXIETY
     Dosage: 20MG PER DAY
     Route: 048
  2. UNKNOWN [Concomitant]

REACTIONS (1)
  - SURGERY [None]
